FAERS Safety Report 24524899 (Version 2)
Quarter: 2024Q4

REPORT INFORMATION
  Report Type: Report from Study
  Country: JP (occurrence: JP)
  Receive Date: 20241019
  Receipt Date: 20241106
  Transmission Date: 20250115
  Serious: Yes (Hospitalization)
  Sender: ABBVIE
  Company Number: JP-ABBVIE-5882127

PATIENT
  Age: 67 Year
  Sex: Female

DRUGS (2)
  1. FOSCARBIDOPA\FOSLEVODOPA [Suspect]
     Active Substance: FOSCARBIDOPA\FOSLEVODOPA
     Indication: Parkinson^s disease
     Dosage: END DATE: 2024
     Route: 058
     Dates: start: 20240723
  2. FOSCARBIDOPA\FOSLEVODOPA [Suspect]
     Active Substance: FOSCARBIDOPA\FOSLEVODOPA
     Route: 058
     Dates: start: 20241101

REACTIONS (17)
  - Infusion site swelling [Unknown]
  - Malaise [Recovered/Resolved]
  - Muscle tightness [Not Recovered/Not Resolved]
  - Tremor [Not Recovered/Not Resolved]
  - General physical health deterioration [Unknown]
  - Posture abnormal [Unknown]
  - Mobility decreased [Not Recovered/Not Resolved]
  - Infusion site reaction [Recovered/Resolved]
  - Nervousness [Unknown]
  - Muscular weakness [Unknown]
  - Infusion site abscess [Unknown]
  - Infusion site reaction [Recovered/Resolved]
  - Infusion site reaction [Unknown]
  - Tension [Unknown]
  - Infusion site discharge [Unknown]
  - Malaise [Not Recovered/Not Resolved]
  - Dropped head syndrome [Not Recovered/Not Resolved]

NARRATIVE: CASE EVENT DATE: 20240101
